FAERS Safety Report 24120818 (Version 1)
Quarter: 2024Q3

REPORT INFORMATION
  Report Type: Spontaneous
  Country: US (occurrence: None)
  Receive Date: 20240718
  Receipt Date: 20240718
  Transmission Date: 20241016
  Serious: No
  Sender: Public
  Company Number: None

PATIENT
  Sex: Female
  Weight: 72.45 kg

DRUGS (7)
  1. OZEMPIC [Suspect]
     Active Substance: SEMAGLUTIDE
     Indication: Insulin resistance
     Dosage: OTHER QUANTITY : 3 INJECTION(S);?OTHER FREQUENCY : ONCE A WEEK;?OTHER ROUTE : INJECTED IN THIGH OR F
     Route: 050
  2. GUANFACINE [Concomitant]
     Active Substance: GUANFACINE
  3. DESVENLAFAXINE [Concomitant]
     Active Substance: DESVENLAFAXINE
  4. GABAPENTIN [Concomitant]
     Active Substance: GABAPENTIN
  5. DEXMETHYLPHENIDATE [Concomitant]
     Active Substance: DEXMETHYLPHENIDATE
  6. VITAMIN D3 [Concomitant]
     Active Substance: CHOLECALCIFEROL
  7. Lmethylfolate [Concomitant]

REACTIONS (2)
  - Injection site vesicles [None]
  - Injection site pain [None]

NARRATIVE: CASE EVENT DATE: 20060206
